FAERS Safety Report 12778650 (Version 2)
Quarter: 2016Q3

REPORT INFORMATION
  Report Type: Report from Study
  Country: US (occurrence: US)
  Receive Date: 20160926
  Receipt Date: 20160930
  Transmission Date: 20161109
  Serious: Yes (Other)
  Sender: FDA-Public Use
  Company Number: US-ROCHE-1834192

PATIENT
  Age: 8 Year
  Sex: Male

DRUGS (1)
  1. NUTROPIN AQ [Suspect]
     Active Substance: SOMATROPIN
     Indication: GROWTH HORMONE DEFICIENCY
     Dosage: NUSPIN 10 MG PEN
     Route: 058
     Dates: start: 20160921

REACTIONS (3)
  - Vomiting [Unknown]
  - Pallor [Unknown]
  - Injection related reaction [Unknown]

NARRATIVE: CASE EVENT DATE: 20160921
